FAERS Safety Report 22247710 (Version 1)
Quarter: 2023Q2

REPORT INFORMATION
  Report Type: Spontaneous
  Country: DE (occurrence: None)
  Receive Date: 20230425
  Receipt Date: 20230425
  Transmission Date: 20230722
  Serious: Yes (Hospitalization, Other)
  Sender: FDA-Public Use
  Company Number: DE-ROCHE-3279434

PATIENT
  Sex: Female

DRUGS (3)
  1. OCREVUS [Suspect]
     Active Substance: OCRELIZUMAB
     Indication: Multiple sclerosis
     Route: 042
  2. DIMETHINDENE [Suspect]
     Active Substance: DIMETHINDENE
     Indication: Premedication
     Route: 042
  3. CORTISONE [Concomitant]
     Active Substance: CORTISONE
     Route: 042

REACTIONS (14)
  - Multiple sclerosis relapse [Unknown]
  - Myalgia [Unknown]
  - Nausea [Unknown]
  - Alopecia [Unknown]
  - Neuralgia [Unknown]
  - Muscle spasticity [Unknown]
  - Fatigue [Unknown]
  - COVID-19 [Recovered/Resolved with Sequelae]
  - Cardiovascular disorder [Unknown]
  - Oxygen saturation decreased [Unknown]
  - Hypotension [Unknown]
  - Antibody test abnormal [Unknown]
  - Taste disorder [Recovered/Resolved]
  - Vaccination failure [Unknown]
